FAERS Safety Report 11782708 (Version 1)
Quarter: 2015Q4

REPORT INFORMATION
  Report Type: Spontaneous
  Country: DE (occurrence: DE)
  Receive Date: 20151127
  Receipt Date: 20151127
  Transmission Date: 20160305
  Serious: Yes (Congenital Anomaly, Other)
  Sender: FDA-Public Use
  Company Number: GXKR2015DE005171

PATIENT

DRUGS (6)
  1. FOLIO                              /00349401/ [Concomitant]
     Indication: PROPHYLAXIS OF NEURAL TUBE DEFECT
     Dosage: 0.4 [MG/D ]
     Route: 064
  2. PREDNISOLON [Suspect]
     Active Substance: PREDNISOLONE
     Indication: RHEUMATOID ARTHRITIS
     Dosage: 10 [MG/D (TO 2.5) ]  (GW 0-28.5)
     Route: 064
     Dates: start: 20141004, end: 20150423
  3. ARAVA [Suspect]
     Active Substance: LEFLUNOMIDE
     Indication: RHEUMATOID ARTHRITIS
     Dosage: 20 [MG/D ] (GW 0-5.4)
     Route: 064
     Dates: start: 20141004, end: 20141112
  4. KOHLE [Concomitant]
     Indication: DETOXIFICATION
     Dosage: 20 [G/D ]/ ONLY 3 DAYS, BECAUSE SHE DID NOT TOLERATE IT.
     Route: 064
     Dates: start: 20141129, end: 20141201
  5. LODOTRA [Suspect]
     Active Substance: PREDNISONE
     Indication: RHEUMATOID ARTHRITIS
     Dosage: 5 [MG/D ]  (GW 28.6-34)
     Route: 064
     Dates: start: 20150424, end: 20150530
  6. COLESTYRAMINE [Concomitant]
     Active Substance: CHOLESTYRAMINE
     Indication: DETOXIFICATION
     Dosage: IN WEEK 11: LEFLUNOMIDE CONCENTRATION WAS 0.01 MG/L
     Route: 064

REACTIONS (5)
  - Intraventricular haemorrhage neonatal [Unknown]
  - Oesophageal atresia [Recovered/Resolved with Sequelae]
  - Small for dates baby [Recovering/Resolving]
  - Premature baby [Recovering/Resolving]
  - Tracheo-oesophageal fistula [Recovered/Resolved with Sequelae]

NARRATIVE: CASE EVENT DATE: 20150530
